FAERS Safety Report 5449574-2 (Version None)
Quarter: 2007Q3

REPORT INFORMATION
  Report Type: 
  Country: None (occurrence: None)
  Receive Date: 20070910
  Receipt Date: 20070910
  Transmission Date: 20080115
  Serious: No
  Sender: FDA-Public Use
  Company Number: None

PATIENT

DRUGS (7)
  1. FABRAZYME [Suspect]
     Indication: FABRY'S DISEASE
     Dosage: 70 MG, IV, Q 2 WKS
     Route: 042
     Dates: start: 20070824
  2. FABRAZYME [Suspect]
     Indication: FABRY'S DISEASE
     Dosage: 70 MG, IV, Q 2 WKS
     Route: 042
     Dates: start: 20070713
  3. FABRAZYME [Suspect]
     Indication: FABRY'S DISEASE
     Dosage: 70 MG, IV, Q 2 WKS
     Route: 042
     Dates: start: 20070727
  4. FABRAZYME [Suspect]
     Indication: FABRY'S DISEASE
     Dosage: 70 MG, IV, Q 2 WKS
     Route: 042
     Dates: start: 20070810
  5. HYDROCORTISONE [Concomitant]
  6. BENEDRYL [Concomitant]
  7. KLONOPIN [Concomitant]

REACTIONS (6)
  - DYSPHEMIA [None]
  - FEELING ABNORMAL [None]
  - HYPOAESTHESIA [None]
  - MUSCLE TWITCHING [None]
  - TREMOR [None]
  - VISION BLURRED [None]
